FAERS Safety Report 5044848-1 (Version None)
Quarter: 2006Q2

REPORT INFORMATION
  Report Type: 
  Country: None (occurrence: None)
  Receive Date: 20060601
  Receipt Date: 20060412
  Transmission Date: 20061013
  Serious: No
  Sender: FDA-Public Use
  Company Number: 2006-BP-02450BP

PATIENT
  Age: 63 Year
  Sex: Female

DRUGS (7)
  1. SPIRIVA [Suspect]
     Indication: CHRONIC OBSTRUCTIVE PULMONARY DISEASE
     Dosage: 18 MCG (18 MCG, 1 IN 1 D), IH
     Route: 055
     Dates: start: 20050927, end: 20051128
  2. SPIRIVA [Suspect]
     Indication: TOBACCO USER
     Dosage: 18 MCG (18 MCG, 1 IN 1 D), IH
     Route: 055
     Dates: start: 20050927, end: 20051128
  3. FLOVENT [Concomitant]
  4. PROTONIX [Concomitant]
  5. PROSAC [Concomitant]
  6. ALBUTEROL SPIROS [Concomitant]
  7. AVELOX [Concomitant]

REACTIONS (2)
  - DYSPNOEA [None]
  - THROAT TIGHTNESS [None]
